FAERS Safety Report 11327373 (Version 2)
Quarter: 2015Q3

REPORT INFORMATION
  Report Type: Spontaneous
  Country: US (occurrence: US)
  Receive Date: 20150731
  Receipt Date: 20150907
  Transmission Date: 20151125
  Serious: Yes (Other)
  Sender: FDA-Public Use
  Company Number: US-ASTRAZENECA-2015SE71660

PATIENT
  Sex: Female
  Weight: 90.7 kg

DRUGS (6)
  1. INSULIN [Concomitant]
     Active Substance: INSULIN NOS
     Indication: DIABETES MELLITUS
  2. LISINOPRIL. [Suspect]
     Active Substance: LISINOPRIL
     Indication: BLOOD PRESSURE ABNORMAL
     Route: 048
  3. ASPIRIN. [Concomitant]
     Active Substance: ASPIRIN
  4. BYDUREON [Suspect]
     Active Substance: EXENATIDE
     Indication: TYPE 2 DIABETES MELLITUS
     Route: 058
  5. METOPROLOL [Concomitant]
     Active Substance: METOPROLOL
  6. LOVASTATIN. [Concomitant]
     Active Substance: LOVASTATIN

REACTIONS (8)
  - Tremor [Unknown]
  - Syncope [Unknown]
  - Balance disorder [Unknown]
  - Underdose [Unknown]
  - Product quality issue [Unknown]
  - Blood glucose decreased [Unknown]
  - Injection site pain [Unknown]
  - Wrong technique in product usage process [Unknown]
